FAERS Safety Report 8033946-6 (Version None)
Quarter: 2011Q4

REPORT INFORMATION
  Report Type: 
  Country: None (occurrence: None)
  Receive Date: 20111202
  Receipt Date: 20101018
  Transmission Date: 20120403
  Serious: Yes (Other)
  Sender: FDA-Public Use
  Company Number: WAES 0708USA00296

PATIENT
  Age: 47 Year
  Sex: Female
  Weight: 104.3273 kg

DRUGS (4)
  1. FOSAMAX [Suspect]
     Indication: OSTEOPOROSIS
     Dosage: 70 MG/WKY/PO
     Route: 048
     Dates: start: 20050429, end: 20070201
  2. FOSAMAX [Suspect]
     Indication: OSTEOPENIA
     Dosage: 70 MG/WKY/PO
     Route: 048
     Dates: start: 20050429, end: 20070201
  3. MICARDIS [Concomitant]
  4. PLENDIL [Concomitant]

REACTIONS (24)
  - ALLERGIC SINUSITIS [None]
  - COCCYDYNIA [None]
  - OTITIS MEDIA ACUTE [None]
  - ARTHRALGIA [None]
  - DENTAL CARIES [None]
  - TEMPOROMANDIBULAR JOINT SYNDROME [None]
  - DYSPNOEA EXERTIONAL [None]
  - PLANTAR FASCIITIS [None]
  - OSTEONECROSIS OF JAW [None]
  - ABDOMINAL PAIN [None]
  - BREAST DISORDER [None]
  - GLUCOSE TOLERANCE IMPAIRED [None]
  - VITAMIN D DEFICIENCY [None]
  - BACK PAIN [None]
  - BENIGN NEOPLASM OF THYROID GLAND [None]
  - ABDOMINAL DISTENSION [None]
  - CONJUNCTIVITIS ALLERGIC [None]
  - HYPERGLYCAEMIA [None]
  - DYSKINESIA [None]
  - EAR PAIN [None]
  - HYPERLIPIDAEMIA [None]
  - INTERVERTEBRAL DISC DEGENERATION [None]
  - EUSTACHIAN TUBE DYSFUNCTION [None]
  - BLOOD CHOLESTEROL INCREASED [None]
